FAERS Safety Report 8487812-2 (Version None)
Quarter: 2012Q2

REPORT INFORMATION
  Report Type: 
  Country: None (occurrence: None)
  Receive Date: 20120402
  Receipt Date: 20101118
  Transmission Date: 20120825
  Serious: Yes (Other)
  Sender: FDA-Public Use
  Company Number: PHHY2010US78292

PATIENT
  Age: 98 Year
  Sex: Female

DRUGS (3)
  1. WARFARIN SODIUM [Concomitant]
  2. EXFORGE [Suspect]
     Indication: HYPERTENSION
  3. FUROSEMIDE (FUROSEMIDE) [Concomitant]

REACTIONS (3)
  - NEUROPATHY PERIPHERAL [None]
  - SKIN BURNING SENSATION [None]
  - PAIN [None]
